FAERS Safety Report 23087783 (Version 4)
Quarter: 2024Q2

REPORT INFORMATION
  Report Type: Spontaneous
  Country: US (occurrence: US)
  Receive Date: 20231020
  Receipt Date: 20240404
  Transmission Date: 20240716
  Serious: Yes (Hospitalization, Other)
  Sender: FDA-Public Use
  Company Number: US-JNJFOC-20231045792

PATIENT
  Age: 57 Year
  Sex: Female
  Weight: 43 kg

DRUGS (41)
  1. OPSUMIT [Suspect]
     Active Substance: MACITENTAN
     Indication: Product used for unknown indication
     Route: 048
     Dates: end: 202302
  2. TREPROSTINIL [Suspect]
     Active Substance: TREPROSTINIL
     Indication: Pulmonary arterial hypertension
     Route: 048
     Dates: start: 20180712
  3. TREPROSTINIL [Suspect]
     Active Substance: TREPROSTINIL
     Route: 048
  4. TREPROSTINIL [Suspect]
     Active Substance: TREPROSTINIL
     Route: 048
  5. TREPROSTINIL [Suspect]
     Active Substance: TREPROSTINIL
     Route: 048
     Dates: start: 202401, end: 202401
  6. TREPROSTINIL [Suspect]
     Active Substance: TREPROSTINIL
     Route: 048
     Dates: start: 202401
  7. ORENITRAM [Suspect]
     Active Substance: TREPROSTINIL
     Indication: Pulmonary arterial hypertension
     Route: 048
     Dates: start: 20181207
  8. ORENITRAM [Suspect]
     Active Substance: TREPROSTINIL
     Route: 048
     Dates: start: 20181207
  9. ORENITRAM [Suspect]
     Active Substance: TREPROSTINIL
     Route: 048
     Dates: start: 20181207
  10. ORENITRAM [Suspect]
     Active Substance: TREPROSTINIL
     Route: 048
     Dates: start: 20181207
  11. ORENITRAM [Suspect]
     Active Substance: TREPROSTINIL
     Route: 048
     Dates: start: 20230131
  12. ORENITRAM [Suspect]
     Active Substance: TREPROSTINIL
     Route: 048
     Dates: start: 20181207
  13. ORENITRAM [Suspect]
     Active Substance: TREPROSTINIL
     Route: 048
     Dates: start: 20230215
  14. ORENITRAM [Suspect]
     Active Substance: TREPROSTINIL
     Route: 048
  15. ORENITRAM [Suspect]
     Active Substance: TREPROSTINIL
     Route: 048
  16. ORENITRAM [Suspect]
     Active Substance: TREPROSTINIL
     Route: 048
  17. ADCIRCA [Suspect]
     Active Substance: TADALAFIL
  18. VITAMIN B12 [Concomitant]
     Active Substance: CYANOCOBALAMIN
  19. FUROSEMIDE [Concomitant]
     Active Substance: FUROSEMIDE
  20. ATORVASTATIN CALCIUM [Concomitant]
     Active Substance: ATORVASTATIN CALCIUM
  21. OMEPRAZOLE [Concomitant]
     Active Substance: OMEPRAZOLE
  22. IMODIUM A-D [Concomitant]
     Active Substance: LOPERAMIDE HYDROCHLORIDE
  23. FOLIC ACID [Concomitant]
     Active Substance: FOLIC ACID
  24. PEPCID AC [Concomitant]
     Active Substance: FAMOTIDINE
  25. POTASSIUM CHLORIDE [Concomitant]
     Active Substance: POTASSIUM CHLORIDE
  26. CYANOCOBALAMIN\FOLIC ACID [Concomitant]
     Active Substance: CYANOCOBALAMIN\FOLIC ACID
  27. SUCRALFATE [Concomitant]
     Active Substance: SUCRALFATE
  28. SPIRONOLACTONE [Concomitant]
     Active Substance: SPIRONOLACTONE
     Dosage: 25 MG DAILY
  29. FERROUS SULFATE [Concomitant]
     Active Substance: FERROUS SULFATE
  30. SILDENAFIL CITRATE [Concomitant]
     Active Substance: SILDENAFIL CITRATE
  31. MIDODRINE [Concomitant]
     Active Substance: MIDODRINE
  32. ALBUMIN HUMAN [Concomitant]
     Active Substance: ALBUMIN HUMAN
  33. IMODIUM AD [Concomitant]
     Active Substance: LOPERAMIDE HYDROCHLORIDE
  34. ZOFRAN [Concomitant]
     Active Substance: ONDANSETRON HYDROCHLORIDE
  35. MONODOXY M [Concomitant]
  36. BENTYL [Concomitant]
     Active Substance: DICYCLOMINE HYDROCHLORIDE
  37. PROTONIX [Concomitant]
     Active Substance: PANTOPRAZOLE SODIUM
  38. CARAFATE [Concomitant]
     Active Substance: SUCRALFATE
  39. CHOLESTYRAMINE [Concomitant]
     Active Substance: CHOLESTYRAMINE
  40. LEVSIN [Concomitant]
     Active Substance: HYOSCYAMINE SULFATE
  41. PEPCID AC [Concomitant]
     Active Substance: FAMOTIDINE

REACTIONS (24)
  - Pancytopenia [Not Recovered/Not Resolved]
  - Gastrointestinal disorder [Not Recovered/Not Resolved]
  - Liver disorder [Unknown]
  - Ascites [Not Recovered/Not Resolved]
  - Pericardial effusion [Unknown]
  - Pulmonary oedema [Unknown]
  - Scleroderma [Not Recovered/Not Resolved]
  - Pulmonary hypertension [Unknown]
  - Colitis [Not Recovered/Not Resolved]
  - Right ventricular failure [Unknown]
  - Cardiac cirrhosis [Unknown]
  - Mallory-Weiss syndrome [Unknown]
  - Portal hypertensive gastropathy [Unknown]
  - Haematemesis [Unknown]
  - Portal tract inflammation [Unknown]
  - Portal fibrosis [Unknown]
  - Hepatic cirrhosis [Recovered/Resolved]
  - Acute kidney injury [Unknown]
  - Rheumatoid arthritis [Unknown]
  - Cachexia [Unknown]
  - Drug tolerance decreased [Unknown]
  - Hepatic function abnormal [Not Recovered/Not Resolved]
  - Asthenia [Unknown]
  - Duodenitis [Unknown]

NARRATIVE: CASE EVENT DATE: 20230131
